FAERS Safety Report 6403255-7 (Version None)
Quarter: 2009Q4

REPORT INFORMATION
  Report Type: 
  Country: None (occurrence: None)
  Receive Date: 20091016
  Receipt Date: 20091009
  Transmission Date: 20100525
  Serious: Yes (Other)
  Sender: FDA-Public Use
  Company Number: GB-PFIZER INC-2009281446

PATIENT

DRUGS (1)
  1. DEPO-PROVERA [Suspect]
     Route: 030

REACTIONS (1)
  - MALARIA [None]
